FAERS Safety Report 16908600 (Version 1)
Quarter: 2019Q4

REPORT INFORMATION
  Report Type: Spontaneous
  Country: AR (occurrence: AR)
  Receive Date: 20191011
  Receipt Date: 20191011
  Transmission Date: 20200122
  Serious: Yes (Other)
  Sender: FDA-Public Use
  Company Number: AR-PFIZER INC-2019436486

PATIENT
  Age: 61 Year
  Sex: Female

DRUGS (1)
  1. IBRANCE [Suspect]
     Active Substance: PALBOCICLIB
     Indication: BREAST CANCER METASTATIC
     Dosage: 125 MG, CYCLIC (DAILY 3X1 SCHEME)
     Dates: start: 20190717

REACTIONS (9)
  - Fall [Unknown]
  - Drug hypersensitivity [Unknown]
  - Lacrimation increased [Unknown]
  - Haemorrhage [Unknown]
  - Eye allergy [Unknown]
  - Amnesia [Unknown]
  - Foreign body sensation in eyes [Unknown]
  - Injury [Unknown]
  - Dyspnoea [Unknown]

NARRATIVE: CASE EVENT DATE: 201907
